FAERS Safety Report 23060979 (Version 1)
Quarter: 2023Q4

REPORT INFORMATION
  Report Type: Spontaneous
  Country: SK (occurrence: SK)
  Receive Date: 20231013
  Receipt Date: 20231013
  Transmission Date: 20240110
  Serious: Yes (Other)
  Sender: FDA-Public Use
  Company Number: SK-BoehringerIngelheim-2022-BI-191377

PATIENT
  Age: 62 Year
  Sex: Female
  Weight: 85 kg

DRUGS (5)
  1. OFEV [Suspect]
     Active Substance: NINTEDANIB
     Indication: Interstitial lung disease
     Dates: start: 202110, end: 202208
  2. OFEV [Suspect]
     Active Substance: NINTEDANIB
     Indication: Polymyositis
     Dates: start: 202208, end: 202307
  3. IMURAN [Concomitant]
     Active Substance: AZATHIOPRINE
     Dates: start: 202110
  4. MEDROL [Concomitant]
     Active Substance: METHYLPREDNISOLONE
     Dates: start: 201711, end: 202108
  5. MEDROL [Concomitant]
     Active Substance: METHYLPREDNISOLONE
     Dates: start: 202110

REACTIONS (3)
  - Haematoma [Recovering/Resolving]
  - Nausea [Recovered/Resolved]
  - Diarrhoea [Recovered/Resolved]

NARRATIVE: CASE EVENT DATE: 20230715
